FAERS Safety Report 9170592 (Version 1)
Quarter: 2013Q1

REPORT INFORMATION
  Report Type: Spontaneous
  Country: KR (occurrence: None)
  Receive Date: 20130312
  Receipt Date: 20130312
  Transmission Date: 20140127
  Serious: Yes (Hospitalization)
  Sender: FDA-Public Use
  Company Number: IMP_06589_2013

PATIENT
  Age: 55 Year
  Sex: Female

DRUGS (6)
  1. METFORMIN (METFORMIN) [Suspect]
  2. AMLODIPINE (UNKNOWN) [Concomitant]
  3. OLMESARTAN (UNKNOWN) [Concomitant]
  4. VITAMIN B-COMPLEX WITH VITAMIN C (UNKNOWN) [Concomitant]
  5. FERRIC HYDROXIDE POLYMALTOSE COMPLEX (UNKNOWN) [Concomitant]
  6. SITAGLIPTIN (UNKNOWN) [Concomitant]

REACTIONS (5)
  - Encephalopathy [None]
  - Dysarthria [None]
  - Blood pressure increased [None]
  - Myoclonus [None]
  - Glycosylated haemoglobin increased [None]
